FAERS Safety Report 8303674-8 (Version None)
Quarter: 2012Q2

REPORT INFORMATION
  Report Type: 
  Country: None (occurrence: None)
  Receive Date: 20120423
  Receipt Date: 20120409
  Transmission Date: 20120825
  Serious: Yes (Other)
  Sender: FDA-Public Use
  Company Number: JP-PFIZER INC-2011167108

PATIENT
  Age: 62 Year
  Sex: Male
  Weight: 65 kg

DRUGS (9)
  1. IRINOTECAN HCL [Suspect]
     Dosage: 253.5 MG, 1X/DAY
     Route: 041
     Dates: start: 20101223, end: 20101223
  2. FLUOROURACIL [Concomitant]
     Dosage: 4056 MG/BODY/D1-2 (2400 MG/M2/D1-2)
     Route: 041
     Dates: start: 20101209, end: 20110217
  3. IRINOTECAN HCL [Suspect]
     Indication: COLORECTAL CANCER
     Dosage: 253.5 MG, 1X/DAY
     Route: 041
     Dates: start: 20101209, end: 20101209
  4. IRINOTECAN HCL [Suspect]
     Dosage: 253.5 MG, 1X/DAY
     Route: 041
     Dates: start: 20110120, end: 20110120
  5. FLUOROURACIL [Concomitant]
     Indication: COLORECTAL CANCER
     Dosage: 676 MG/BODY (400 MG/M2)
     Route: 040
     Dates: start: 20101209, end: 20110217
  6. IRINOTECAN HCL [Suspect]
     Dosage: 253.5 MG, 1X/DAY
     Route: 041
     Dates: start: 20110203, end: 20110203
  7. IRINOTECAN HCL [Suspect]
     Dosage: 253.5 MG, 1X/DAY
     Route: 041
     Dates: start: 20110217, end: 20110217
  8. CALCIUM LEVOFOLINATE [Concomitant]
     Indication: COLORECTAL CANCER
     Dosage: 338 MG/BODY (200 MG/M2)
     Route: 041
     Dates: start: 20101209, end: 20110217
  9. IRINOTECAN HCL [Suspect]
     Dosage: 253.5 MG, 1X/DAY
     Route: 041
     Dates: start: 20110106, end: 20110106

REACTIONS (8)
  - BLOOD CREATININE INCREASED [None]
  - ASPARTATE AMINOTRANSFERASE INCREASED [None]
  - LEUKOPENIA [None]
  - NEUTROPENIA [None]
  - PYREXIA [None]
  - BLOOD CHOLESTEROL INCREASED [None]
  - BLOOD BILIRUBIN INCREASED [None]
  - BLOOD ALBUMIN DECREASED [None]
